FAERS Safety Report 15961794 (Version 2)
Quarter: 2019Q1

REPORT INFORMATION
  Report Type: Spontaneous
  Country: PL (occurrence: PL)
  Receive Date: 20190214
  Receipt Date: 20190308
  Transmission Date: 20190417
  Serious: Yes (Life-Threatening)
  Sender: FDA-Public Use
  Company Number: PHHY2019PL034245

PATIENT
  Age: 73 Year
  Sex: Male
  Weight: 80 kg

DRUGS (3)
  1. OSPAMOX [Suspect]
     Active Substance: AMOXICILLIN
     Indication: BRONCHITIS
  2. IVY LEAF [Concomitant]
     Indication: BRONCHITIS
     Dosage: 7.5 OT, TID
     Route: 048
  3. OSPAMOX [Suspect]
     Active Substance: AMOXICILLIN
     Indication: INFECTION
     Dosage: 2 DF, QD
     Route: 048

REACTIONS (6)
  - Dyspnoea [Recovered/Resolved with Sequelae]
  - Eyelid oedema [Recovered/Resolved with Sequelae]
  - Rash maculo-papular [Recovered/Resolved with Sequelae]
  - Rash [Unknown]
  - Tongue oedema [Recovered/Resolved with Sequelae]
  - Face oedema [Unknown]

NARRATIVE: CASE EVENT DATE: 20181220
